FAERS Safety Report 7555307-6 (Version None)
Quarter: 2011Q2

REPORT INFORMATION
  Report Type: 
  Country: None (occurrence: None)
  Receive Date: 20110617
  Receipt Date: 20110606
  Transmission Date: 20111010
  Serious: Yes (Hospitalization)
  Sender: FDA-Public Use
  Company Number: PHHY2011US50024

PATIENT
  Sex: Male

DRUGS (1)
  1. EXJADE [Suspect]
     Indication: IRON METABOLISM DISORDER
     Dosage: 2000 MG, DAILY
     Route: 048
     Dates: start: 20110405

REACTIONS (4)
  - ASTHENIA [None]
  - PLATELET COUNT ABNORMAL [None]
  - BLOOD COUNT ABNORMAL [None]
  - FALL [None]
